FAERS Safety Report 14807691 (Version 1)
Quarter: 2018Q2

REPORT INFORMATION
  Report Type: Spontaneous
  Country: US (occurrence: US)
  Receive Date: 20180425
  Receipt Date: 20180425
  Transmission Date: 20180711
  Serious: No
  Sender: FDA-Public Use
  Company Number: US-009507513-1804USA009939

PATIENT
  Sex: Male

DRUGS (1)
  1. NUVARING [Suspect]
     Active Substance: ETHINYL ESTRADIOL\ETONOGESTREL
     Dosage: UNK

REACTIONS (4)
  - Skin discolouration [Unknown]
  - Genital discomfort [Unknown]
  - Genital rash [Unknown]
  - Penile erythema [Unknown]

NARRATIVE: CASE EVENT DATE: 201803
